FAERS Safety Report 14995960 (Version 1)
Quarter: 2018Q2

REPORT INFORMATION
  Report Type: Report from Study
  Country: IE (occurrence: IE)
  Receive Date: 20180611
  Receipt Date: 20180611
  Transmission Date: 20180711
  Serious: Yes (Other)
  Sender: FDA-Public Use
  Company Number: IE-JNJFOC-20180525486

PATIENT
  Age: 68 Year
  Sex: Female

DRUGS (14)
  1. STELARA [Suspect]
     Active Substance: USTEKINUMAB
     Indication: TEMPORAL ARTERITIS
     Route: 058
     Dates: start: 20180125
  2. NEXIUM [Concomitant]
     Active Substance: ESOMEPRAZOLE MAGNESIUM
     Route: 050
  3. AMLODIPINE [Concomitant]
     Active Substance: AMLODIPINE BESYLATE
     Route: 050
  4. FOLIC ACID. [Concomitant]
     Active Substance: FOLIC ACID
     Route: 050
  5. DELTACORTRIL [Concomitant]
     Active Substance: PREDNISOLONE
     Route: 050
  6. CANDESARTAN. [Concomitant]
     Active Substance: CANDESARTAN
     Route: 050
  7. CALCICHEW [Concomitant]
     Active Substance: CALCIUM CARBONATE
     Route: 050
  8. MONTELUKAST [Concomitant]
     Active Substance: MONTELUKAST SODIUM
     Dosage: NIGHT
     Route: 050
  9. BISOPROLOL [Concomitant]
     Active Substance: BISOPROLOL
     Route: 050
  10. METHOTREXATE. [Concomitant]
     Active Substance: METHOTREXATE
     Route: 050
  11. ASPIRIN. [Concomitant]
     Active Substance: ASPIRIN
     Route: 050
  12. FEXOFENADINE [Concomitant]
     Active Substance: FEXOFENADINE\FEXOFENADINE HYDROCHLORIDE
     Route: 050
  13. BETAHISTINE [Concomitant]
     Active Substance: BETAHISTINE
     Route: 050
  14. LYRICA [Concomitant]
     Active Substance: PREGABALIN
     Route: 050

REACTIONS (4)
  - Product use in unapproved indication [Unknown]
  - Lower respiratory tract infection [Recovered/Resolved]
  - Off label use [Unknown]
  - Fungal infection [Recovered/Resolved]

NARRATIVE: CASE EVENT DATE: 20180125
